FAERS Safety Report 6738097-6 (Version None)
Quarter: 2010Q2

REPORT INFORMATION
  Report Type: 
  Country: None (occurrence: None)
  Receive Date: 20100520
  Receipt Date: 20100513
  Transmission Date: 20101027
  Serious: Yes (Death)
  Sender: FDA-Public Use
  Company Number: 2010JP002809

PATIENT
  Age: 75 Year
  Sex: Male

DRUGS (6)
  1. FUNGUARD (MICAFUNGIN) INJECTION [Suspect]
     Indication: PNEUMONIA
     Dosage: 100 MG, /D, IV DRIP
     Route: 041
     Dates: start: 20100312, end: 20100323
  2. FULCALIQ (AMINO ACIDS NOS, CARBOHYDRATES NOS, ELECTROLYTES NOS, VITAMI [Concomitant]
  3. ELEMENMIC (COPPER SULFATE, FERRIC CHLORIDE, MANGANESE CHLORIDE, POTASS [Concomitant]
  4. AMIGRAND [Concomitant]
  5. CARBENIN (BETAMIPRON, PANIPENEM) INJECTION [Concomitant]
  6. LASIX [Concomitant]

REACTIONS (2)
  - JAUNDICE [None]
  - LIVER DISORDER [None]
